FAERS Safety Report 24404922 (Version 1)
Quarter: 2024Q4

REPORT INFORMATION
  Report Type: Report from Study
  Country: AU (occurrence: AU)
  Receive Date: 20241007
  Receipt Date: 20241007
  Transmission Date: 20250115
  Serious: No
  Sender: ROCHE
  Company Number: AU-ROCHE-3541705

PATIENT
  Sex: Female
  Weight: 112.0 kg

DRUGS (1)
  1. GAZYVA [Suspect]
     Active Substance: OBINUTUZUMAB
     Indication: Glomerulonephritis membranous
     Dosage: 2 DOSES, 2 WEEKS APART. SUBSEQUENT DOSING DEPENDING ON B CELLS RECONSTITUTION, FOR THE NEXT 24 MONTH
     Route: 042
     Dates: start: 20240418

REACTIONS (2)
  - Off label use [Unknown]
  - No adverse event [Unknown]
